FAERS Safety Report 5023393-3 (Version None)
Quarter: 2006Q2

REPORT INFORMATION
  Report Type: 
  Country: None (occurrence: None)
  Receive Date: 20060606
  Receipt Date: 20060522
  Transmission Date: 20061013
  Serious: Yes (Hospitalization)
  Sender: FDA-Public Use
  Company Number: ST-2006-009046

PATIENT
  Age: 68 Year
  Sex: Male

DRUGS (5)
  1. OLMETEC [Suspect]
     Indication: HYPERTENSION
     Dosage: 20 MG DAILY; PO
     Route: 048
     Dates: start: 20060110, end: 20060120
  2. CHOLEBRINE [Concomitant]
  3. EPADEL [Concomitant]
  4. SINLESTAL [Concomitant]
  5. CALBLOCK [Concomitant]

REACTIONS (4)
  - ANOREXIA [None]
  - DRUG ERUPTION [None]
  - HEPATIC FUNCTION ABNORMAL [None]
  - MALAISE [None]
